FAERS Safety Report 7904853-1 (Version None)
Quarter: 2011Q4

REPORT INFORMATION
  Report Type: 
  Country: None (occurrence: None)
  Receive Date: 20111109
  Receipt Date: 20111028
  Transmission Date: 20120403
  Serious: Yes (Other)
  Sender: FDA-Public Use
  Company Number: PHHY2011FR95963

PATIENT
  Age: 52 Year
  Sex: Male

DRUGS (1)
  1. OCTREOTIDE ACETATE [Suspect]
     Indication: METASTASES TO LIVER
     Dosage: 30 MG, QMO

REACTIONS (2)
  - MELANOCYTIC NAEVUS [None]
  - SKIN LESION [None]
